FAERS Safety Report 11026488 (Version 1)
Quarter: 2015Q2

REPORT INFORMATION
  Report Type: Spontaneous
  Country: US (occurrence: None)
  Receive Date: 20150413
  Receipt Date: 20150413
  Transmission Date: 20150821
  Serious: No
  Sender: FDA-Public Use
  Company Number: None

PATIENT
  Age: 53 Year
  Sex: Female
  Weight: 92.08 kg

DRUGS (4)
  1. CYMBALTA [Suspect]
     Active Substance: DULOXETINE HYDROCHLORIDE
     Route: 048
  2. MULTI VITAMIN [Concomitant]
     Active Substance: VITAMINS
  3. MELATONIN [Concomitant]
     Active Substance: MELATONIN
  4. FISH OIL [Concomitant]
     Active Substance: FISH OIL

REACTIONS (11)
  - Asthenia [None]
  - Headache [None]
  - Drug withdrawal syndrome [None]
  - Paraesthesia [None]
  - Dizziness [None]
  - Sinus disorder [None]
  - Nightmare [None]
  - Vision blurred [None]
  - Feeling abnormal [None]
  - Somnolence [None]
  - Fatigue [None]

NARRATIVE: CASE EVENT DATE: 20150406
